FAERS Safety Report 13296935 (Version 1)
Quarter: 2017Q1

REPORT INFORMATION
  Report Type: Spontaneous
  Country: TN (occurrence: TN)
  Receive Date: 20170306
  Receipt Date: 20170306
  Transmission Date: 20170428
  Serious: Yes (Life-Threatening, Other)
  Sender: FDA-Public Use
  Company Number: TN-ACCORD-048750

PATIENT
  Age: 55 Year
  Sex: Male

DRUGS (8)
  1. METHYLDOPA. [Suspect]
     Active Substance: METHYLDOPA
     Indication: HYPERTENSION
     Dates: start: 201410
  2. ALFACALCIDOL [Suspect]
     Active Substance: ALFACALCIDOL
     Indication: CALCIUM DEFICIENCY
     Dates: start: 201410
  3. IRON [Concomitant]
     Active Substance: IRON
  4. BETAXOLOL. [Suspect]
     Active Substance: BETAXOLOL
     Indication: PRODUCT USED FOR UNKNOWN INDICATION
  5. ACETYLSALICYLIC ACID [Concomitant]
     Active Substance: ASPIRIN
  6. FAMOTIDINE. [Suspect]
     Active Substance: FAMOTIDINE
     Indication: PRODUCT USED FOR UNKNOWN INDICATION
  7. CALCIUM GLUCONATE. [Concomitant]
     Active Substance: CALCIUM GLUCONATE
     Indication: CALCIUM DEFICIENCY
     Dates: start: 201410
  8. AMLODIPINE [Suspect]
     Active Substance: AMLODIPINE BESYLATE
     Indication: PRODUCT USED FOR UNKNOWN INDICATION

REACTIONS (3)
  - Drug reaction with eosinophilia and systemic symptoms [Recovering/Resolving]
  - Renal failure [Recovered/Resolved]
  - Hepatocellular injury [Recovered/Resolved]

NARRATIVE: CASE EVENT DATE: 2014
